FAERS Safety Report 6054234-3 (Version None)
Quarter: 2009Q1

REPORT INFORMATION
  Report Type: 
  Country: None (occurrence: None)
  Receive Date: 20090127
  Receipt Date: 20090120
  Transmission Date: 20090719
  Serious: Yes (Death, Hospitalization)
  Sender: FDA-Public Use
  Company Number: KR-JNJFOC-20090104684

PATIENT
  Sex: Female
  Weight: 45 kg

DRUGS (16)
  1. DURAGESIC-100 [Suspect]
     Route: 062
  2. DURAGESIC-100 [Suspect]
     Route: 062
  3. DURAGESIC-100 [Suspect]
     Route: 062
  4. DURAGESIC-100 [Suspect]
     Route: 062
  5. DURAGESIC-100 [Suspect]
     Route: 062
  6. DURAGESIC-100 [Suspect]
     Route: 062
  7. DURAGESIC-100 [Suspect]
     Route: 062
  8. DURAGESIC-100 [Suspect]
     Indication: PAIN MANAGEMENT
     Route: 062
  9. ANTICONVULSANT [Concomitant]
     Indication: PAIN MANAGEMENT
     Route: 048
  10. ULTRACET [Concomitant]
     Indication: PAIN MANAGEMENT
     Route: 048
  11. CODENA-S [Concomitant]
     Indication: COUGH
     Route: 048
  12. GASMOTIN [Concomitant]
     Indication: DYSPEPSIA
     Route: 048
  13. MEGACE [Concomitant]
     Indication: ANOREXIA
     Route: 048
  14. AMOLDIPINE MALEATE [Concomitant]
     Indication: HYPERTENSION
     Route: 048
  15. STILLEN [Concomitant]
     Indication: DYSPEPSIA
     Route: 048
  16. CODEINE/ACETAMINOPHEN/IBUPROFEN [Concomitant]
     Indication: PAIN MANAGEMENT
     Route: 048

REACTIONS (2)
  - MENTAL IMPAIRMENT [None]
  - PNEUMONIA [None]
